FAERS Safety Report 6357995-9 (Version None)
Quarter: 2009Q3

REPORT INFORMATION
  Report Type: 
  Country: None (occurrence: None)
  Receive Date: 20090916
  Receipt Date: 20090911
  Transmission Date: 20100115
  Serious: Yes (Hospitalization)
  Sender: FDA-Public Use
  Company Number: GB-NAPPMUNDI-GBR-2009-0005561

PATIENT
  Sex: Female

DRUGS (2)
  1. OXYNORM [Suspect]
     Indication: BREAKTHROUGH PAIN
  2. OXYCONTIN [Suspect]
     Indication: DRUG USE FOR UNKNOWN INDICATION
     Dosage: UNK

REACTIONS (3)
  - BLISTER [None]
  - ERYTHEMA [None]
  - PANIC ATTACK [None]
